FAERS Safety Report 24290008 (Version 5)
Quarter: 2025Q2

REPORT INFORMATION
  Report Type: Spontaneous
  Country: AR (occurrence: AR)
  Receive Date: 20240906
  Receipt Date: 20250611
  Transmission Date: 20250717
  Serious: Yes (Other)
  Sender: SANDOZ
  Company Number: AR-SANDOZ-SDZ2024AR048537

PATIENT
  Sex: Female
  Weight: 51 kg

DRUGS (8)
  1. OMNITROPE [Suspect]
     Active Substance: SOMATROPIN
     Indication: Growth hormone deficiency
     Route: 058
     Dates: start: 20140922
  2. OMNITROPE [Suspect]
     Active Substance: SOMATROPIN
     Route: 058
     Dates: start: 20140922
  3. OMNITROPE [Suspect]
     Active Substance: SOMATROPIN
     Route: 058
     Dates: start: 20140922
  4. OMNITROPE [Suspect]
     Active Substance: SOMATROPIN
     Indication: Growth retardation
     Dosage: 1.0 MG, QD
     Route: 058
     Dates: start: 20140922
  5. DESMOPRESSIN [Concomitant]
     Active Substance: DESMOPRESSIN
     Indication: Diabetes insipidus
     Dosage: 0.5 MG, QD
     Route: 065
  6. HYDROCORTISONE [Concomitant]
     Active Substance: HYDROCORTISONE
     Indication: Septo-optic dysplasia
     Dosage: 1.15 MG, QD
     Route: 065
  7. LEVOTHYROXINE [Concomitant]
     Active Substance: LEVOTHYROXINE
     Indication: Septo-optic dysplasia
     Route: 065
  8. LEVOTHYROXINE [Concomitant]
     Active Substance: LEVOTHYROXINE
     Route: 065

REACTIONS (27)
  - Tonsillar disorder [Unknown]
  - Peripheral coldness [Unknown]
  - Hair growth abnormal [Unknown]
  - Breast enlargement [Unknown]
  - Drooling [Unknown]
  - Learning disorder [Unknown]
  - Asthenia [Unknown]
  - Gait disturbance [Unknown]
  - Thyroxine increased [Unknown]
  - Influenza [Unknown]
  - Night sweats [Unknown]
  - Erythema [Unknown]
  - Hypoaesthesia [Unknown]
  - Cough [Unknown]
  - Menarche [Unknown]
  - Melanocytic naevus [Unknown]
  - Skin disorder [Unknown]
  - Vision blurred [Unknown]
  - Dysphonia [Unknown]
  - Peripheral swelling [Unknown]
  - Myalgia [Unknown]
  - Arthralgia [Unknown]
  - Drug hypersensitivity [Unknown]
  - Injection site pain [Unknown]
  - Therapy interrupted [Unknown]
  - Product availability issue [Unknown]
  - Wrong technique in product usage process [Unknown]

NARRATIVE: CASE EVENT DATE: 20220101
